FAERS Safety Report 10190836 (Version 2)
Quarter: 2014Q2

REPORT INFORMATION
  Report Type: Spontaneous
  Country: RU (occurrence: RU)
  Receive Date: 20140523
  Receipt Date: 20140611
  Transmission Date: 20141212
  Serious: Yes (Hospitalization)
  Sender: FDA-Public Use
  Company Number: RU-009507513-1405RUS011148

PATIENT
  Age: 50 Year
  Sex: Female
  Weight: 78 kg

DRUGS (1)
  1. NUVARING [Suspect]
     Indication: ENDOMETRIAL HYPERPLASIA
     Dosage: UNK
     Route: 067

REACTIONS (2)
  - Haemorrhage [Recovered/Resolved]
  - Vaginal haemorrhage [Unknown]
